FAERS Safety Report 8911667 (Version 1)
Quarter: 2012Q4

REPORT INFORMATION
  Report Type: Spontaneous
  Country: US (occurrence: None)
  Receive Date: 20121114
  Receipt Date: 20121114
  Transmission Date: 20130627
  Serious: Yes (Disabling)
  Sender: FDA-Public Use
  Company Number: None

PATIENT
  Age: 63 Year
  Sex: Male
  Weight: 65.77 kg

DRUGS (2)
  1. CUBICIN [Suspect]
     Indication: CELLULITIS
     Dosage: 400 mg q24H IV
     Route: 042
     Dates: start: 20121010, end: 20121107
  2. PRIMAXIN IV [Suspect]
     Dosage: 500 mg q6H IV
     Route: 042
     Dates: start: 20120927, end: 20121107

REACTIONS (2)
  - Dysgeusia [None]
  - Ageusia [None]
